FAERS Safety Report 10441176 (Version 2)
Quarter: 2014Q3

REPORT INFORMATION
  Report Type: Spontaneous
  Country: FR (occurrence: FR)
  Receive Date: 20140909
  Receipt Date: 20140918
  Transmission Date: 20150326
  Serious: Yes (Hospitalization, Other)
  Sender: FDA-Public Use
  Company Number: FR-ASTRAZENECA-2014SE67029

PATIENT
  Sex: Male

DRUGS (1)
  1. INEXIUM [Suspect]
     Active Substance: ESOMEPRAZOLE
     Indication: OESOPHAGEAL ULCER
     Route: 048
     Dates: start: 201312, end: 20140730

REACTIONS (6)
  - General physical health deterioration [Unknown]
  - Pancytopenia [Unknown]
  - Dysphagia [Unknown]
  - Tumour compression [Unknown]
  - Bone marrow failure [Recovered/Resolved]
  - Febrile neutropenia [Unknown]

NARRATIVE: CASE EVENT DATE: 20140725
